FAERS Safety Report 4598585-8 (Version None)
Quarter: 2005Q1

REPORT INFORMATION
  Report Type: 
  Country: None (occurrence: None)
  Receive Date: 20050301
  Receipt Date: 20050301
  Transmission Date: 20050727
  Serious: Yes (Hospitalization)
  Sender: FDA-Public Use
  Company Number: None

PATIENT
  Sex: Male

DRUGS (1)
  1. ALBUTEROL [Suspect]
     Indication: DYSPNOEA
     Dates: start: 20041101, end: 20041101

REACTIONS (1)
  - TACHYCARDIA [None]
